FAERS Safety Report 6311597-9 (Version None)
Quarter: 2009Q3

REPORT INFORMATION
  Report Type: 
  Country: None (occurrence: None)
  Receive Date: 20090817
  Receipt Date: 20090810
  Transmission Date: 20100115
  Serious: Yes (Other)
  Sender: FDA-Public Use
  Company Number: A0798465A

PATIENT
  Sex: Female
  Weight: 11 kg

DRUGS (6)
  1. SERETIDE [Suspect]
     Indication: BRONCHIAL DYSPLASIA
     Dosage: 1PUFF TWICE PER DAY
     Route: 055
     Dates: start: 20080701
  2. VALPROIC ACID [Concomitant]
     Dosage: 2ML TWICE PER DAY
     Dates: start: 20090615
  3. MULTI-VITAMIN [Concomitant]
     Dosage: 11DROP PER DAY
  4. FERROUS SULFATE TAB [Concomitant]
  5. ASCORBIC ACID [Concomitant]
  6. CEFACLOR [Concomitant]
     Dosage: 3.5ML THREE TIMES PER DAY

REACTIONS (7)
  - CONVULSION [None]
  - DISORIENTATION [None]
  - DRUG INEFFECTIVE [None]
  - LOSS OF CONSCIOUSNESS [None]
  - PRODUCT QUALITY ISSUE [None]
  - PYREXIA [None]
  - SOMNOLENCE [None]
